FAERS Safety Report 20958725 (Version 2)
Quarter: 2022Q2

REPORT INFORMATION
  Report Type: Spontaneous
  Country: US (occurrence: US)
  Receive Date: 20220614
  Receipt Date: 20220627
  Transmission Date: 20220721
  Serious: No
  Sender: FDA-Public Use
  Company Number: US-PFIZER INC-202200757360

PATIENT
  Age: 53 Year
  Sex: Male
  Weight: 110 kg

DRUGS (2)
  1. SOMAVERT [Suspect]
     Active Substance: PEGVISOMANT
     Indication: Acromegaly
     Dosage: 10 MG (DOSE UNKNOWN; 10MG VIAL)
  2. STERILE WATER [Suspect]
     Active Substance: WATER
     Dosage: UNK

REACTIONS (3)
  - Drug dose omission by device [Unknown]
  - Syringe issue [Unknown]
  - Needle issue [Unknown]
